FAERS Safety Report 15628390 (Version 2)
Quarter: 2018Q4

REPORT INFORMATION
  Report Type: Spontaneous
  Country: US (occurrence: US)
  Receive Date: 20181116
  Receipt Date: 20181204
  Transmission Date: 20190205
  Serious: No
  Sender: FDA-Public Use
  Company Number: US-PFIZER INC-2018460822

PATIENT
  Sex: Male
  Weight: 88.45 kg

DRUGS (2)
  1. GABAPENTIN. [Suspect]
     Active Substance: GABAPENTIN
     Indication: NEURALGIA
  2. GABAPENTIN. [Suspect]
     Active Substance: GABAPENTIN
     Indication: SPINAL CORD INJURY
     Dosage: 400 MG, DAILY(100MG TWICE A DAY, AND TWO 100MG AT NIGHT)
     Route: 048

REACTIONS (5)
  - Irritability [Unknown]
  - Restlessness [Unknown]
  - Mood altered [Unknown]
  - Nervousness [Unknown]
  - Drug ineffective for unapproved indication [Unknown]
